FAERS Safety Report 5330645-6 (Version None)
Quarter: 2007Q2

REPORT INFORMATION
  Report Type: 
  Country: None (occurrence: None)
  Receive Date: 20070517
  Receipt Date: 20070507
  Transmission Date: 20071010
  Serious: Yes (Hospitalization)
  Sender: FDA-Public Use
  Company Number: B0470680A

PATIENT
  Age: 3 Year
  Sex: Male
  Weight: 16.9645 kg

DRUGS (1)
  1. WELLBUTRIN XL [Suspect]
     Indication: ACCIDENTAL OVERDOSE
     Dosage: 300 MG/SEE DOSAGE TEXT/ORAL
     Route: 048

REACTIONS (17)
  - ACCIDENTAL DRUG INTAKE BY CHILD [None]
  - ACCIDENTAL OVERDOSE [None]
  - ACUTE RESPIRATORY DISTRESS SYNDROME [None]
  - AREFLEXIA [None]
  - BLOOD GLUCOSE INCREASED [None]
  - BRADYCARDIA [None]
  - CARDIOTOXICITY [None]
  - DEPRESSED LEVEL OF CONSCIOUSNESS [None]
  - GRAND MAL CONVULSION [None]
  - HYPOTENSION [None]
  - NO THERAPEUTIC RESPONSE [None]
  - PNEUMONIA ASPIRATION [None]
  - POSTICTAL STATE [None]
  - PULMONARY OEDEMA [None]
  - PULSE ABSENT [None]
  - SINUS TACHYCARDIA [None]
  - VOMITING [None]
